FAERS Safety Report 7036743-3 (Version None)
Quarter: 2010Q4

REPORT INFORMATION
  Report Type: 
  Country: None (occurrence: None)
  Receive Date: 20101011
  Receipt Date: 20100929
  Transmission Date: 20110411
  Serious: No
  Sender: FDA-Public Use
  Company Number: 2009BI028075

PATIENT
  Sex: Female

DRUGS (3)
  1. TYSABRI [Suspect]
     Indication: MULTIPLE SCLEROSIS
     Route: 042
     Dates: start: 20080304
  2. AVONEX [Concomitant]
     Indication: MULTIPLE SCLEROSIS
     Route: 030
     Dates: start: 20000201
  3. BETASERON [Concomitant]
     Indication: MULTIPLE SCLEROSIS

REACTIONS (10)
  - ASTHENIA [None]
  - BLOOD PRESSURE INCREASED [None]
  - CLUMSINESS [None]
  - DIARRHOEA [None]
  - DIZZINESS [None]
  - DYSPEPSIA [None]
  - FALL [None]
  - FATIGUE [None]
  - NAUSEA [None]
  - VOMITING [None]
